FAERS Safety Report 9524370 (Version 1)
Quarter: 2013Q1

REPORT INFORMATION
  Report Type: Spontaneous
  Country: US (occurrence: None)
  Receive Date: 20130305
  Receipt Date: 20130305
  Transmission Date: 20140127
  Serious: Yes (Hospitalization)
  Sender: FDA-Public Use
  Company Number: 163-21880-12033443

PATIENT
  Age: 82 Year
  Sex: Female
  Weight: 65.32 kg

DRUGS (16)
  1. REVLIMID (LENALIDOMIDE) (25 MILLIGRAM, CAPSULES) [Suspect]
     Indication: PLASMA CELL MYELOMA
     Dosage: 25 MG, 1 IN 1 D, PO
     Route: 048
     Dates: start: 20100819
  2. ANASTROZOLE (ANASTROZOLE) (UNKNOWN)? [Concomitant]
  3. ASA (ACETYLSALICYLIC ACID) (UNKNOWN) [Concomitant]
  4. ATIVAN (LORAZEPAM) (UNKNOWN) [Concomitant]
  5. CALCIUM (CALCIUM) (UNKNOWN) [Concomitant]
  6. COLACE (DOCUSATE SODIUM) (UNKNOWN) [Concomitant]
  7. ENALAPRIL (ENALAPRIL) (UNKNOWN) [Concomitant]
  8. GABAPENTIN (GABAPENTIN) (UNKNOWN)? [Concomitant]
  9. GEMFIBROZIL (GEMFIBROZIL) (UNKNOWN) [Concomitant]
  10. KLOR-CON (POTASSIUM CHLORIDE) (UNKNOWN) [Concomitant]
  11. LASIX (FUROSEMIDE) (UNKNOWN) [Concomitant]
  12. LEVOTHYROXIN (LEVOTHYROXINE SODIUM) (UNKNOWN) [Concomitant]
  13. METOPROLOL (METOPROLOL) (UNKNOWN) [Concomitant]
  14. MULTIVIT (MULTIVIT) (UNKNOWN) [Concomitant]
  15. NITROFUR (NITROFUR-C) (UNKNOWN) [Concomitant]
  16. OXYBUTYNIN (OXYBUTYNIN) (UNKNOWN) [Concomitant]

REACTIONS (1)
  - Cerebrovascular accident [None]
